FAERS Safety Report 5899284-2 (Version None)
Quarter: 2008Q3

REPORT INFORMATION
  Report Type: 
  Country: None (occurrence: None)
  Receive Date: 20080925
  Receipt Date: 20080916
  Transmission Date: 20090109
  Serious: Yes (Other)
  Sender: FDA-Public Use
  Company Number: CA-MERCK-0809CAN00094

PATIENT
  Sex: Male

DRUGS (4)
  1. ZETIA [Suspect]
     Route: 048
     Dates: end: 20070901
  2. ATORVASTATIN CALCIUM [Suspect]
     Route: 048
     Dates: end: 20070901
  3. ATORVASTATIN CALCIUM [Suspect]
     Route: 048
  4. ATORVASTATIN CALCIUM [Suspect]
     Route: 048

REACTIONS (6)
  - ADVERSE EVENT [None]
  - ASTHENIA [None]
  - DISCOMFORT [None]
  - INJURY [None]
  - JOINT INJURY [None]
  - MUSCLE INJURY [None]
